FAERS Safety Report 24736328 (Version 2)
Quarter: 2025Q2

REPORT INFORMATION
  Report Type: Spontaneous
  Country: GB (occurrence: GB)
  Receive Date: 20241216
  Receipt Date: 20250606
  Transmission Date: 20250717
  Serious: Yes (Death, Other)
  Sender: AUROBINDO
  Company Number: GB-MHRA-MED-202411282051500620-CNPQS

PATIENT
  Age: 42 Year
  Sex: Male

DRUGS (9)
  1. ACETAMINOPHEN [Suspect]
     Active Substance: ACETAMINOPHEN
     Indication: Influenza
     Route: 065
     Dates: start: 20240406
  2. ACETAMINOPHEN [Suspect]
     Active Substance: ACETAMINOPHEN
     Indication: Nasopharyngitis
  3. CAFFEINE [Suspect]
     Active Substance: CAFFEINE
     Indication: Influenza
     Route: 065
     Dates: start: 20240406
  4. CAFFEINE [Suspect]
     Active Substance: CAFFEINE
     Indication: Nasopharyngitis
  5. GUAIFENESIN [Suspect]
     Active Substance: GUAIFENESIN
     Indication: Influenza
     Route: 065
     Dates: start: 20240406
  6. GUAIFENESIN [Suspect]
     Active Substance: GUAIFENESIN
     Indication: Nasopharyngitis
  7. PHENYLEPHRINE [Suspect]
     Active Substance: PHENYLEPHRINE
     Indication: Influenza
     Route: 065
     Dates: start: 20240406
  8. PHENYLEPHRINE [Suspect]
     Active Substance: PHENYLEPHRINE
     Indication: Nasopharyngitis
  9. GUAIFENESIN [Suspect]
     Active Substance: GUAIFENESIN
     Indication: Product used for unknown indication
     Route: 065
     Dates: start: 20250406

REACTIONS (3)
  - Death [Fatal]
  - Toxicity to various agents [Fatal]
  - Product administration error [Unknown]

NARRATIVE: CASE EVENT DATE: 20240408
